FAERS Safety Report 5220410-2 (Version None)
Quarter: 2007Q1

REPORT INFORMATION
  Report Type: 
  Country: None (occurrence: None)
  Receive Date: 20070125
  Receipt Date: 20070117
  Transmission Date: 20070707
  Serious: Yes (Hospitalization, Other)
  Sender: FDA-Public Use
  Company Number: JP-ABBOTT-01P-087-0112985-00

PATIENT
  Sex: Male

DRUGS (31)
  1. NORVIR [Suspect]
     Indication: HIV INFECTION
     Route: 048
     Dates: start: 19991101, end: 20020228
  2. KALETRA [Suspect]
     Indication: HIV INFECTION
     Route: 048
     Dates: start: 20020401
  3. ABACAVIR SULFATE [Suspect]
     Indication: HIV INFECTION
     Route: 048
     Dates: start: 19991101, end: 20000103
  4. SAQUINAVIR [Suspect]
     Indication: HIV INFECTION
     Route: 048
     Dates: start: 19991221, end: 20020228
  5. AMPRENAVIR [Suspect]
     Indication: HIV INFECTION
     Route: 048
     Dates: start: 19991101, end: 19991220
  6. NEVIRAPINE [Suspect]
     Indication: HIV INFECTION
     Route: 048
     Dates: start: 19991221, end: 19991230
  7. NEVIRAPINE [Suspect]
     Route: 048
     Dates: start: 20060130, end: 20060212
  8. NEVIRAPINE [Suspect]
     Route: 048
     Dates: start: 20060213, end: 20060226
  9. NEVIRAPINE [Suspect]
     Route: 048
     Dates: start: 20060227, end: 20060313
  10. NEVIRAPINE [Suspect]
     Route: 048
     Dates: start: 20060314, end: 20060320
  11. NEVIRAPINE [Suspect]
     Route: 048
     Dates: start: 20060321
  12. EFAVIRENZ [Suspect]
     Indication: HIV INFECTION
     Route: 048
     Dates: start: 19991101, end: 19991220
  13. EFAVIRENZ [Suspect]
     Route: 048
     Dates: start: 20020401
  14. LAMIVUDINE [Suspect]
     Indication: HIV INFECTION
     Route: 048
     Dates: start: 19991221, end: 20020228
  15. LAMIVUDINE [Suspect]
     Route: 048
     Dates: start: 20060130
  16. STAVUDINE [Suspect]
     Indication: HIV INFECTION
     Route: 048
     Dates: start: 19991221, end: 20020228
  17. TENOFOVIR [Suspect]
     Indication: HIV INFECTION
     Route: 048
     Dates: start: 20020401
  18. PENTAMIDINE ISETHIONATE [Concomitant]
     Indication: ANTIFUNGAL PROPHYLAXIS
     Dates: start: 19991101
  19. 5 % GLUCOSE [Concomitant]
     Indication: ANTIFUNGAL PROPHYLAXIS
     Dates: start: 19991101
  20. 5 % GLUCOSE [Concomitant]
     Route: 042
     Dates: start: 20020401, end: 20020805
  21. OCTOCOG ALFA [Concomitant]
     Indication: FACTOR VIII DEFICIENCY
     Dates: start: 19991101, end: 19991130
  22. OCTOCOG ALFA [Concomitant]
     Dosage: 2000 - 4000 UNIT
     Dates: start: 19991201
  23. OCTOCOG ALFA [Concomitant]
     Dosage: 1000-2000 U
     Route: 042
     Dates: start: 20030626
  24. INSULIN HUMAN (GENTICAL RECOMBINATION) [Concomitant]
     Indication: DIABETES MELLITUS
     Route: 050
     Dates: start: 20020416, end: 20020501
  25. INSULIN HUMAN (GENTICAL RECOMBINATION) [Concomitant]
     Route: 050
     Dates: start: 20020502, end: 20020515
  26. INSULIN HUMAN (GENTICAL RECOMBINATION) [Concomitant]
     Route: 050
     Dates: start: 20020502, end: 20020515
  27. INSULIN HUMAN (GENTICAL RECOMBINATION) [Concomitant]
     Route: 050
     Dates: start: 20020516, end: 20020608
  28. PENTAMIDINE ISETHIONATE [Concomitant]
     Indication: ANTIFUNGAL PROPHYLAXIS
     Route: 042
     Dates: start: 20020401, end: 20020805
  29. COAGULATION FACTOR VIII [Concomitant]
     Indication: FACTOR VIII DEFICIENCY
     Route: 042
     Dates: start: 20020401, end: 20030624
  30. CLARITHROMYCIN [Concomitant]
     Indication: ANTIBIOTIC PROPHYLAXIS
     Route: 048
     Dates: start: 20020530, end: 20021125
  31. KETOTIFEN FUMARATE [Concomitant]
     Indication: INSOMNIA
     Route: 048
     Dates: start: 20021125, end: 20040125

REACTIONS (23)
  - BLOOD ALKALINE PHOSPHATASE INCREASED [None]
  - BLOOD LACTIC ACID INCREASED [None]
  - BLOOD TRIGLYCERIDES INCREASED [None]
  - CARDIOMEGALY [None]
  - DIABETES MELLITUS [None]
  - DIZZINESS [None]
  - EYE DISORDER [None]
  - FAT REDISTRIBUTION [None]
  - GAMMA-GLUTAMYLTRANSFERASE INCREASED [None]
  - HAEMARTHROSIS [None]
  - IMPETIGO [None]
  - INSOMNIA [None]
  - LIP EROSION [None]
  - MASS [None]
  - MUSCLE HAEMORRHAGE [None]
  - MUSCULAR WEAKNESS [None]
  - OESOPHAGEAL CANDIDIASIS [None]
  - PRURITUS [None]
  - PYREXIA [None]
  - RASH [None]
  - STAPHYLOCOCCAL INFECTION [None]
  - TACHYCARDIA [None]
  - WEIGHT DECREASED [None]
